FAERS Safety Report 22097938 (Version 4)
Quarter: 2023Q2

REPORT INFORMATION
  Report Type: Spontaneous
  Country: US (occurrence: US)
  Receive Date: 20230315
  Receipt Date: 20230502
  Transmission Date: 20230722
  Serious: Yes (Other)
  Sender: FDA-Public Use
  Company Number: US-002147023-NVSC2023US059764

PATIENT
  Sex: Male
  Weight: 109 kg

DRUGS (2)
  1. PLUVICTO [Suspect]
     Active Substance: LUTETIUM LU-177 VIPIVOTIDE TETRAXETAN
     Indication: Product used for unknown indication
     Dosage: UNK
     Route: 065
     Dates: start: 20220923, end: 20230210
  2. PLUVICTO [Suspect]
     Active Substance: LUTETIUM LU-177 VIPIVOTIDE TETRAXETAN
     Dosage: UNK (VIAL 36)
     Route: 042
     Dates: start: 20221229

REACTIONS (6)
  - Ill-defined disorder [Not Recovered/Not Resolved]
  - Urinary tract obstruction [Unknown]
  - Blood creatinine increased [Unknown]
  - Laboratory test abnormal [Unknown]
  - Asthenia [Unknown]
  - Fatigue [Unknown]
